FAERS Safety Report 5099287-4 (Version None)
Quarter: 2006Q3

REPORT INFORMATION
  Report Type: 
  Country: None (occurrence: None)
  Receive Date: 20060731
  Receipt Date: 20050909
  Transmission Date: 20061208
  Serious: Yes (Life-Threatening)
  Sender: FDA-Public Use
  Company Number: US-2005-018841

PATIENT
  Age: 34 Year
  Sex: Male
  Weight: 101.1 kg

DRUGS (1)
  1. MAGNEVIST [Suspect]
     Indication: NUCLEAR MAGNETIC RESONANCE IMAGING
     Dosage: 20 ML 1 DOSE INTRAVENOUS
     Route: 042
     Dates: start: 20050909, end: 20050909

REACTIONS (6)
  - DYSGEUSIA [None]
  - NASAL CONGESTION [None]
  - NAUSEA [None]
  - RHINORRHOEA [None]
  - THROAT IRRITATION [None]
  - URTICARIA [None]
